FAERS Safety Report 11653801 (Version 1)
Quarter: 2015Q4

REPORT INFORMATION
  Report Type: Spontaneous
  Country: JP (occurrence: JP)
  Receive Date: 20151022
  Receipt Date: 20151022
  Transmission Date: 20160304
  Serious: Yes (Death, Hospitalization, Other)
  Sender: FDA-Public Use
  Company Number: JP-APOTEX-2015AP013517

PATIENT
  Age: 59 Year
  Sex: Male

DRUGS (1)
  1. PAXIL CR [Suspect]
     Active Substance: PAROXETINE HYDROCHLORIDE
     Indication: DEPRESSION
     Dosage: UNK MG, UNK
     Route: 048
     Dates: start: 201505

REACTIONS (7)
  - Ischaemic hepatitis [Unknown]
  - Liver disorder [Fatal]
  - Diarrhoea [Unknown]
  - Nausea [Unknown]
  - Malaise [Unknown]
  - Liver function test abnormal [Unknown]
  - Multi-organ failure [Unknown]
